FAERS Safety Report 7592674-1 (Version None)
Quarter: 2011Q2

REPORT INFORMATION
  Report Type: 
  Country: None (occurrence: None)
  Receive Date: 20110628
  Receipt Date: 20110614
  Transmission Date: 20111010
  Serious: Yes (Death, Hospitalization)
  Sender: FDA-Public Use
  Company Number: 1000019970

PATIENT
  Age: 73 Year
  Sex: Female
  Weight: 107 kg

DRUGS (25)
  1. ROFLUMILAST (ROFLUMILAST) (500 MICROGRAM, TABLETS) [Suspect]
     Indication: CHRONIC OBSTRUCTIVE PULMONARY DISEASE
     Dosage: 500 MCG (500 MCG, 1 IN 1 D), ORAL
     Route: 048
     Dates: start: 20110112, end: 20110112
  2. PREDNISOLONE [Concomitant]
  3. MAGNESIA (MAGNERSIUM) [Concomitant]
  4. SIMVASTATIN [Concomitant]
  5. PROGYNON (ESTRADIOL VALERATE) [Concomitant]
  6. SYMBICORT [Concomitant]
  7. DUSPATALIN (MEBEVERINE HYDROCHLORIDE) [Concomitant]
  8. BERODUAL (IPRATROPIUM, FENOTEROL) [Concomitant]
  9. ROFLUMILAST (ROFLUMILAST) (500 MICROGRAM, TABLET) [Suspect]
     Indication: CHRONIC OBSTRUCTIVE PULMONARY DISEASE
     Dosage: 500 MCG (500 MCG, 1 IN 1 D), ORAL
     Route: 048
     Dates: start: 20110125
  10. SERTRALINE HYDROCHLORIDE [Suspect]
     Indication: DEPRESSION
  11. LOSATRIX (LOSARTAN) [Concomitant]
  12. MAREVAN (WARFARIN SODIUIM) [Concomitant]
  13. UNIKALK PLUS (CALCIUM D3) [Concomitant]
  14. PRIMIDONE [Concomitant]
  15. SPIRON (SPIRONALCTONE) [Concomitant]
  16. HAIPREX (METHENAMINE HIPPURATE) [Concomitant]
  17. GABAPENTIN [Concomitant]
  18. FURIX (FUROSEMIDE) [Concomitant]
  19. DICLON RAPID (DICLOFENAC SODIUM) [Concomitant]
  20. CEFUROXIME [Concomitant]
  21. ISOPTIN [Concomitant]
  22. HJERTAMAGNYL (HJERTEMAGNYL) [Concomitant]
  23. BETOLVEX (CYANOCOBALAMIN-TANNIN) [Concomitant]
  24. PINEX (SULFOGAIACOL) [Concomitant]
  25. POTASSIUM CHLORIDE [Concomitant]

REACTIONS (11)
  - BLOOD CREATININE INCREASED [None]
  - DYSPNOEA [None]
  - DECREASED APPETITE [None]
  - COMPLETED SUICIDE [None]
  - C-REACTIVE PROTEIN INCREASED [None]
  - WHITE BLOOD CELL COUNT INCREASED [None]
  - DEHYDRATION [None]
  - DEPRESSED LEVEL OF CONSCIOUSNESS [None]
  - URINARY TRACT INFECTION [None]
  - DEPRESSED MOOD [None]
  - DEPRESSION [None]
